FAERS Safety Report 8186232-8 (Version None)
Quarter: 2012Q1

REPORT INFORMATION
  Report Type: 
  Country: None (occurrence: None)
  Receive Date: 20120301
  Receipt Date: 20120221
  Transmission Date: 20120608
  Serious: Yes (Death)
  Sender: FDA-Public Use
  Company Number: 216756

PATIENT
  Sex: Female

DRUGS (3)
  1. INNOHEP [Suspect]
     Indication: PROPHYLAXIS
  2. INNOHEP [Suspect]
     Indication: NEUROSURGERY
  3. ANTICOAGULANTS (ANTITHROMBOTIC AGENTS) [Concomitant]

REACTIONS (1)
  - HEPARIN-INDUCED THROMBOCYTOPENIA [None]
